FAERS Safety Report 8287477-9 (Version None)
Quarter: 2012Q2

REPORT INFORMATION
  Report Type: 
  Country: None (occurrence: None)
  Receive Date: 20120410
  Receipt Date: 20120410
  Transmission Date: 20120825
  Serious: Yes (Hospitalization)
  Sender: FDA-Public Use
  Company Number: None

PATIENT
  Age: 75 Year
  Sex: Male
  Weight: 85.2762 kg

DRUGS (2)
  1. PRADAXA [Suspect]
     Dosage: 150MG BID PO
     Route: 048
     Dates: start: 20110123
  2. PRADAXA [Suspect]
     Dosage: 150MG BID PO
     Route: 048
     Dates: start: 20110118

REACTIONS (2)
  - MELAENA [None]
  - ABDOMINAL PAIN UPPER [None]
